FAERS Safety Report 9285273 (Version 1)
Quarter: 2013Q2

REPORT INFORMATION
  Report Type: Spontaneous
  Country: AU (occurrence: None)
  Receive Date: 20130507
  Receipt Date: 20130507
  Transmission Date: 20140414
  Serious: Yes (Death, Hospitalization)
  Sender: FDA-Public Use
  Company Number: AU-INDICUS PHARMA-000081

PATIENT
  Age: 74 Year
  Sex: Female

DRUGS (1)
  1. METFORMIN HYDROCHLORIDE (METFORMIN HYDROCHLORIDE) [Suspect]
     Indication: PRODUCT USED FOR UNKNOWN INDICATION

REACTIONS (4)
  - Lactic acidosis [None]
  - Septic shock [None]
  - Loss of consciousness [None]
  - Hypotension [None]
